FAERS Safety Report 4582599-8 (Version None)
Quarter: 2005Q1

REPORT INFORMATION
  Report Type: 
  Country: None (occurrence: None)
  Receive Date: 20050211
  Receipt Date: 20050211
  Transmission Date: 20050727
  Serious: Yes (Other)
  Sender: FDA-Public Use
  Company Number: None

PATIENT
  Age: 32 Year
  Sex: Female
  Weight: 51.7101 kg

DRUGS (2)
  1. BEXTRA [Suspect]
     Indication: ARTHRITIS
     Dosage: 1 TAB TWICE DAY ORAL
     Route: 048
     Dates: start: 20040924, end: 20041211
  2. BEXTRA [Suspect]
     Indication: SPONDYLITIS
     Dosage: 1 TAB TWICE DAY ORAL
     Route: 048
     Dates: start: 20040924, end: 20041211

REACTIONS (2)
  - HYPOAESTHESIA [None]
  - WEIGHT INCREASED [None]
